FAERS Safety Report 25435849 (Version 2)
Quarter: 2025Q3

REPORT INFORMATION
  Report Type: Spontaneous
  Country: JP (occurrence: JP)
  Receive Date: 20250613
  Receipt Date: 20250810
  Transmission Date: 20251021
  Serious: Yes (Other)
  Sender: ALEXION PHARMACEUTICALS
  Company Number: JP-ASTRAZENECA-230027830_011620_P_1

PATIENT

DRUGS (1)
  1. LYNPARZA [Suspect]
     Active Substance: OLAPARIB

REACTIONS (1)
  - Uveitis [Unknown]
